FAERS Safety Report 15840404 (Version 1)
Quarter: 2019Q1

REPORT INFORMATION
  Report Type: Other
  Country: GB (occurrence: GB)
  Receive Date: 20190118
  Receipt Date: 20190118
  Transmission Date: 20190417
  Serious: Yes (Disabling, Other)
  Sender: FDA-Public Use
  Company Number: GB-EMCURE PHARMACEUTICALS LTD-2019-EPL-0013

PATIENT

DRUGS (2)
  1. ZOLEDRONIC ACID [Suspect]
     Active Substance: ZOLEDRONIC ACID
     Indication: OSTEOPOROSIS
     Dosage: 5 MILLIGRAM, 1 Y
     Route: 051
     Dates: start: 20180814, end: 20180814
  2. AMITRIPTYLINE [Concomitant]
     Active Substance: AMITRIPTYLINE

REACTIONS (9)
  - Myalgia [Recovering/Resolving]
  - Dupuytren^s contracture [Not Recovered/Not Resolved]
  - Joint noise [Not Recovered/Not Resolved]
  - Movement disorder [Recovering/Resolving]
  - Arthralgia [Recovering/Resolving]
  - Pain in jaw [Not Recovered/Not Resolved]
  - Pruritus [Recovering/Resolving]
  - Paraesthesia [Not Recovered/Not Resolved]
  - Temporomandibular joint syndrome [Not Recovered/Not Resolved]

NARRATIVE: CASE EVENT DATE: 20180815
